FAERS Safety Report 5147718-3 (Version None)
Quarter: 2006Q4

REPORT INFORMATION
  Report Type: 
  Country: None (occurrence: None)
  Receive Date: 20061110
  Receipt Date: 20060522
  Transmission Date: 20070319
  Serious: No
  Sender: FDA-Public Use
  Company Number: FRWYE645223MAY06

PATIENT
  Sex: Male
  Weight: 72 kg

DRUGS (6)
  1. ENBREL [Suspect]
     Indication: ANKYLOSING SPONDYLITIS
     Route: 058
     Dates: start: 20051201
  2. ENBREL [Suspect]
     Route: 058
     Dates: start: 20060101
  3. NEURONTIN [Suspect]
     Indication: NEUROPATHY PERIPHERAL
     Route: 048
  4. CALMATUX [Suspect]
     Dosage: NOT SPECIFIED
     Route: 048
  5. ANTIDEPRESSANTS [Concomitant]
  6. TRANXENE [Concomitant]

REACTIONS (2)
  - ASTHENIA [None]
  - FLATULENCE [None]
